FAERS Safety Report 4572974-X (Version None)
Quarter: 2005Q1

REPORT INFORMATION
  Report Type: 
  Country: None (occurrence: None)
  Receive Date: 20050203
  Receipt Date: 20050119
  Transmission Date: 20050727
  Serious: Yes (Hospitalization)
  Sender: FDA-Public Use
  Company Number: DEU-2005-0001206

PATIENT
  Age: 41 Year
  Sex: Male

DRUGS (4)
  1. OXYCODONE HCL [Suspect]
     Indication: ARTHRALGIA
     Dosage: SEE IMAGE
     Route: 048
     Dates: end: 20041217
  2. AZATHIOPRINE SODIUM [Concomitant]
  3. SALOFALK ^FALK^ (MESALAZINE) [Concomitant]
  4. CONCOR (BISOPROLOL FUMARATE) [Concomitant]

REACTIONS (10)
  - ANOREXIA [None]
  - CONSTIPATION [None]
  - DIZZINESS [None]
  - ERYTHEMA [None]
  - FEAR [None]
  - NAUSEA [None]
  - PRURITUS [None]
  - SOMNOLENCE [None]
  - TOOTH DISORDER [None]
  - TOOTHACHE [None]
